FAERS Safety Report 5125655-8 (Version None)
Quarter: 2006Q4

REPORT INFORMATION
  Report Type: 
  Country: None (occurrence: None)
  Receive Date: 20061012
  Receipt Date: 20061002
  Transmission Date: 20070319
  Serious: Yes (Other)
  Sender: FDA-Public Use
  Company Number: PHBS2006CH15644

PATIENT
  Age: 11 Year
  Sex: Male

DRUGS (3)
  1. RITALIN [Suspect]
     Indication: ATTENTION DEFICIT/HYPERACTIVITY DISORDER
     Dosage: 50 MG/D
     Route: 065
  2. RITALIN [Suspect]
     Dosage: 60 MG/D
     Route: 065
  3. RITALIN [Suspect]
     Dosage: 30 MG/D
     Route: 065

REACTIONS (3)
  - AGGRESSION [None]
  - ANOREXIA [None]
  - SLEEP DISORDER [None]
